FAERS Safety Report 18612619 (Version 1)
Quarter: 2020Q4

REPORT INFORMATION
  Report Type: Spontaneous
  Country: DE (occurrence: KR)
  Receive Date: 20201214
  Receipt Date: 20201214
  Transmission Date: 20210114
  Serious: Yes (Hospitalization)
  Sender: FDA-Public Use
  Company Number: KR-ELI_LILLY_AND_COMPANY-KR202012002371

PATIENT
  Age: 68 Year
  Sex: Male

DRUGS (3)
  1. 5 FU [Suspect]
     Active Substance: FLUOROURACIL
     Indication: RECTOSIGMOID CANCER
     Dosage: 2000 MG, UNK
     Route: 065
     Dates: start: 20190822, end: 20190824
  2. ERBITUX [Suspect]
     Active Substance: CETUXIMAB
     Indication: RECTOSIGMOID CANCER
     Dosage: 500 MG, UNK
     Route: 065
     Dates: start: 20190822, end: 20190822
  3. IRINOTECAN [Suspect]
     Active Substance: IRINOTECAN
     Indication: RECTOSIGMOID CANCER
     Dosage: 280 MG, UNK
     Route: 065
     Dates: start: 20190822, end: 20190822

REACTIONS (1)
  - Neutropenia [Recovered/Resolved]

NARRATIVE: CASE EVENT DATE: 20190829
